FAERS Safety Report 4772153-7 (Version None)
Quarter: 2005Q3

REPORT INFORMATION
  Report Type: 
  Country: None (occurrence: None)
  Receive Date: 20050919
  Receipt Date: 20040820
  Transmission Date: 20060218
  Serious: No
  Sender: FDA-Public Use
  Company Number: US-BRISTOL-MYERS SQUIBB COMPANY-12678280

PATIENT
  Age: 50 Year
  Sex: Female

DRUGS (1)
  1. DEFINITY [Suspect]
     Dosage: 1.1 ML DILUTED IN 9 ML SALINE.  6 CC GIVEN.

REACTIONS (1)
  - BACK PAIN [None]
